FAERS Safety Report 9861752 (Version 5)
Quarter: 2014Q3

REPORT INFORMATION
  Report Type: Spontaneous
  Country: JP (occurrence: JP)
  Receive Date: 20140203
  Receipt Date: 20140709
  Transmission Date: 20150326
  Serious: Yes (Death, Hospitalization)
  Sender: FDA-Public Use
  Company Number: JP-AMGEN-JPNSP2014005666

PATIENT
  Age: 79 Year
  Sex: Female
  Weight: 45 kg

DRUGS (10)
  1. IRINOTECAN [Suspect]
     Active Substance: IRINOTECAN
     Indication: RECTOSIGMOID CANCER
     Dosage: 150 MG, Q2WEEKS
     Route: 041
     Dates: start: 20121122, end: 20121210
  2. IRINOTECAN [Suspect]
     Active Substance: IRINOTECAN
     Dosage: 120 UNK, Q2WEEKS
     Route: 041
     Dates: start: 20121212, end: 20140106
  3. 5 FU [Concomitant]
     Active Substance: FLUOROURACIL
     Dosage: 400 MG, Q2WK
     Route: 040
     Dates: start: 20121212, end: 20140106
  4. CAMPTO [Suspect]
     Active Substance: IRINOTECAN
     Dosage: 120 MG, Q2WK
     Route: 041
     Dates: start: 20121212, end: 20140106
  5. 5 FU [Concomitant]
     Active Substance: FLUOROURACIL
     Indication: RECTOSIGMOID CANCER
     Dosage: 500 MG, Q2WK
     Route: 040
     Dates: start: 20121122, end: 20121210
  6. LEVOFOLINATE [Concomitant]
     Active Substance: LEVOLEUCOVORIN CALCIUM
     Indication: RECTOSIGMOID CANCER
     Dosage: 250 MG, Q2WK
     Route: 041
     Dates: start: 20121122, end: 20140106
  7. 5 FU [Concomitant]
     Active Substance: FLUOROURACIL
     Dosage: 2500 MG, Q2WK
     Route: 041
     Dates: start: 20121122, end: 20121210
  8. 5 FU [Concomitant]
     Active Substance: FLUOROURACIL
     Dosage: 2000 MG, Q2WK
     Route: 041
     Dates: start: 20121212, end: 20140106
  9. VECTIBIX [Suspect]
     Active Substance: PANITUMUMAB
     Indication: RECTOSIGMOID CANCER
     Dosage: 270 MG, Q2WK
     Route: 041
     Dates: start: 20121122, end: 20140106
  10. CAMPTO [Suspect]
     Active Substance: IRINOTECAN
     Indication: RECTOSIGMOID CANCER
     Dosage: 150 MG, Q2WK
     Route: 041
     Dates: start: 20121122, end: 20121210

REACTIONS (6)
  - Diarrhoea [Unknown]
  - Alopecia [Unknown]
  - Interstitial lung disease [Fatal]
  - Multi-organ failure [Fatal]
  - Decreased appetite [Unknown]
  - Muscular weakness [Unknown]

NARRATIVE: CASE EVENT DATE: 20140123
